FAERS Safety Report 7973526 (Version 2)
Quarter: 2020Q3

REPORT INFORMATION
  Report Type: Report from Study
  Country: US (occurrence: US)
  Receive Date: 20110603
  Receipt Date: 20110616
  Transmission Date: 20201105
  Serious: Yes (Death, Hospitalization, Other)
  Sender: FDA-Public Use
  Company Number: US-PFIZER INC-2011111509

PATIENT
  Age: 55 Year
  Sex: Female
  Weight: 73.8 kg

DRUGS (12)
  1. ATIVAN [Concomitant]
     Active Substance: LORAZEPAM
  2. GLUCOPHAGE [Concomitant]
     Active Substance: METFORMIN HYDROCHLORIDE
  3. TORISEL [Suspect]
     Active Substance: TEMSIROLIMUS
     Indication: PELVIC NEOPLASM
     Dosage: 25 MG IV OVER 30?60 MINUTES ON DAYS 1, 8, 15, AND 22
     Route: 042
     Dates: start: 20110210, end: 20110505
  4. SELUMETINIB. [Suspect]
     Active Substance: SELUMETINIB
     Indication: PELVIC NEOPLASM
     Dosage: 50 MG, 2X/DAY
     Route: 048
     Dates: start: 20110210, end: 20110507
  5. ACTOS [Concomitant]
     Active Substance: PIOGLITAZONE HYDROCHLORIDE
  6. K?DUR [Concomitant]
     Active Substance: POTASSIUM CHLORIDE
  7. MIRALAX [Concomitant]
     Active Substance: POLYETHYLENE GLYCOL 3350
  8. IMODIUM [Concomitant]
     Active Substance: LOPERAMIDE HYDROCHLORIDE
  9. OXYCONTIN [Concomitant]
     Active Substance: OXYCODONE HYDROCHLORIDE
  10. COLACE [Concomitant]
     Active Substance: DOCUSATE SODIUM
  11. LASIX [Concomitant]
     Active Substance: FUROSEMIDE
  12. OXYCODONE [Concomitant]
     Active Substance: OXYCODONE

REACTIONS (3)
  - Colitis [Unknown]
  - Disease progression [Fatal]
  - Pelvic neoplasm [Fatal]

NARRATIVE: CASE EVENT DATE: 20110507
